FAERS Safety Report 5103055-4 (Version None)
Quarter: 2006Q3

REPORT INFORMATION
  Report Type: 
  Country: None (occurrence: None)
  Receive Date: 20060907
  Receipt Date: 20060825
  Transmission Date: 20061208
  Serious: Yes (Other)
  Sender: FDA-Public Use
  Company Number: 14711

PATIENT
  Age: 53 Year
  Sex: Male
  Weight: 63 kg

DRUGS (6)
  1. PACLITAXEL [Suspect]
     Dates: start: 20060731
  2. CARBOPLATIN [Suspect]
  3. GRANISETRON [Concomitant]
  4. DEXAMETHASONE [Concomitant]
  5. DIFENHIDRAMINE [Concomitant]
  6. RANITIDINE [Concomitant]

REACTIONS (6)
  - BACK PAIN [None]
  - BRONCHOSPASM [None]
  - CYANOSIS [None]
  - DEPRESSED LEVEL OF CONSCIOUSNESS [None]
  - HYPERHIDROSIS [None]
  - HYPOTENSION [None]
